FAERS Safety Report 20670110 (Version 2)
Quarter: 2022Q2

REPORT INFORMATION
  Report Type: Report from Study
  Country: DE (occurrence: DE)
  Receive Date: 20220404
  Receipt Date: 20220624
  Transmission Date: 20220721
  Serious: Yes (Other)
  Sender: FDA-Public Use
  Company Number: DE-TAKEDA-DE201945855

PATIENT
  Age: 68 Year
  Sex: Male

DRUGS (14)
  1. TEDUGLUTIDE [Suspect]
     Active Substance: TEDUGLUTIDE
     Indication: Short-bowel syndrome
     Dosage: 2.800 MILLIGRAM, QD
     Route: 042
     Dates: start: 201611, end: 201811
  2. TEDUGLUTIDE [Suspect]
     Active Substance: TEDUGLUTIDE
     Indication: Short-bowel syndrome
     Dosage: 2.800 MILLIGRAM, QD
     Route: 042
     Dates: start: 201611, end: 201811
  3. TEDUGLUTIDE [Suspect]
     Active Substance: TEDUGLUTIDE
     Indication: Short-bowel syndrome
     Dosage: 2.800 MILLIGRAM, QD
     Route: 042
     Dates: start: 201611, end: 201811
  4. TEDUGLUTIDE [Suspect]
     Active Substance: TEDUGLUTIDE
     Indication: Short-bowel syndrome
     Dosage: 2.800 MILLIGRAM, QD
     Route: 042
     Dates: start: 201611, end: 201811
  5. TEDUGLUTIDE [Suspect]
     Active Substance: TEDUGLUTIDE
     Dosage: 2.100 MILLIGRAM, QD
     Route: 042
     Dates: start: 201811, end: 201901
  6. TEDUGLUTIDE [Suspect]
     Active Substance: TEDUGLUTIDE
     Dosage: 2.100 MILLIGRAM, QD
     Route: 042
     Dates: start: 201811, end: 201901
  7. TEDUGLUTIDE [Suspect]
     Active Substance: TEDUGLUTIDE
     Dosage: 2.100 MILLIGRAM, QD
     Route: 042
     Dates: start: 201811, end: 201901
  8. TEDUGLUTIDE [Suspect]
     Active Substance: TEDUGLUTIDE
     Dosage: 2.100 MILLIGRAM, QD
     Route: 042
     Dates: start: 201811, end: 201901
  9. URSODIOL [Concomitant]
     Active Substance: URSODIOL
     Indication: Progressive familial intrahepatic cholestasis
     Dosage: 250 MILLIGRAM, QID
     Route: 048
     Dates: start: 20190402
  10. URSODIOL [Concomitant]
     Active Substance: URSODIOL
     Indication: Hepatic failure
     Dosage: 250 MILLIGRAM, QD
     Route: 048
     Dates: start: 201812
  11. URSODIOL [Concomitant]
     Active Substance: URSODIOL
     Indication: Cholestasis
  12. BEZAFIBRATE [Concomitant]
     Active Substance: BEZAFIBRATE
     Indication: Progressive familial intrahepatic cholestasis
     Dosage: 400 MILLIGRAM, QD
     Route: 048
     Dates: start: 20190304
  13. BEZAFIBRATE [Concomitant]
     Active Substance: BEZAFIBRATE
     Indication: Hepatic failure
  14. PANCRELIPASE [Concomitant]
     Active Substance: PANCRELIPASE
     Indication: Dyspepsia
     Dosage: 25000 INTERNATIONAL UNIT, TID
     Route: 048

REACTIONS (3)
  - Hepatic failure [Not Recovered/Not Resolved]
  - Progressive familial intrahepatic cholestasis [Not Recovered/Not Resolved]
  - Splenomegaly [Not Recovered/Not Resolved]

NARRATIVE: CASE EVENT DATE: 20180601
